FAERS Safety Report 13845230 (Version 1)
Quarter: 2017Q3

REPORT INFORMATION
  Report Type: Spontaneous
  Country: JP (occurrence: JP)
  Receive Date: 20170808
  Receipt Date: 20170808
  Transmission Date: 20171127
  Serious: Yes (Other)
  Sender: FDA-Public Use
  Company Number: JP-CELGENEUS-JPN-20170800477

PATIENT

DRUGS (2)
  1. REVLIMID [Suspect]
     Active Substance: LENALIDOMIDE
     Indication: PLASMA CELL MYELOMA
     Route: 048
  2. DEXAMETHASONE. [Suspect]
     Active Substance: DEXAMETHASONE
     Indication: PLASMA CELL MYELOMA
     Route: 065

REACTIONS (13)
  - Colon cancer [Unknown]
  - Lung neoplasm malignant [Unknown]
  - Gastric cancer [Unknown]
  - Pancreatic carcinoma [Unknown]
  - Brain neoplasm malignant [Unknown]
  - Myelodysplastic syndrome [Unknown]
  - Constipation [Unknown]
  - Bladder cancer [Unknown]
  - Rash [Unknown]
  - Renal failure [Unknown]
  - Treatment noncompliance [Unknown]
  - Fatigue [Unknown]
  - Oedema [Unknown]
